FAERS Safety Report 5442657-2 (Version None)
Quarter: 2007Q3

REPORT INFORMATION
  Report Type: 
  Country: None (occurrence: None)
  Receive Date: 20070904
  Receipt Date: 20070823
  Transmission Date: 20080115
  Serious: Yes (Other)
  Sender: FDA-Public Use
  Company Number: DE-SHR-DE-2007-023745

PATIENT
  Age: 81 Year
  Sex: Male

DRUGS (8)
  1. MAGNEVIST [Suspect]
     Indication: ANGIOGRAM
     Dosage: 32 ML, 1 DOSE
     Route: 042
     Dates: start: 20011220, end: 20011220
  2. MAGNEVIST [Suspect]
     Dosage: 18 ML, 1 DOSE
     Route: 042
     Dates: start: 20020611, end: 20020611
  3. MAGNEVIST [Suspect]
     Dosage: 15 ML, 1 DOSE
     Route: 042
     Dates: start: 20020901, end: 20020901
  4. MAGNEVIST [Suspect]
     Dosage: 30 ML, 1 DOSE
     Route: 042
     Dates: start: 20021101, end: 20021101
  5. MAGNEVIST [Suspect]
     Dosage: 15 ML, 1 DOSE
     Route: 042
     Dates: start: 20021101, end: 20021101
  6. MULTIHANCE [Suspect]
     Dosage: 16 ML, 1 DOSE
     Route: 042
     Dates: start: 20020417, end: 20020417
  7. MULTIHANCE [Suspect]
     Dosage: 16 ML, 1 DOSE
     Route: 042
     Dates: start: 20020430, end: 20020430
  8. MULTIHANCE [Suspect]
     Dosage: 15 ML, 1 DOSE
     Route: 042
     Dates: start: 20020801, end: 20020801

REACTIONS (1)
  - NEPHROGENIC SYSTEMIC FIBROSIS [None]
